FAERS Safety Report 6496437-X (Version None)
Quarter: 2009Q4

REPORT INFORMATION
  Report Type: 
  Country: None (occurrence: None)
  Receive Date: 20091210
  Receipt Date: 20091203
  Transmission Date: 20100525
  Serious: Yes (Other)
  Sender: FDA-Public Use
  Company Number: SPV1-2009-02445

PATIENT
  Age: 77 Year
  Sex: Female

DRUGS (1)
  1. FOSRENOL      (LANTHANUM CARBONATE) [Suspect]

REACTIONS (1)
  - RECTAL HAEMORRHAGE [None]
